FAERS Safety Report 9029327 (Version 3)
Quarter: 2014Q1

REPORT INFORMATION
  Report Type: Spontaneous
  Country: US (occurrence: US)
  Receive Date: 20130125
  Receipt Date: 20140109
  Transmission Date: 20141002
  Serious: Yes (Hospitalization)
  Sender: FDA-Public Use
  Company Number: US-JNJFOC-20130109865

PATIENT
  Sex: Male
  Weight: 97.52 kg

DRUGS (3)
  1. DURAGESIC [Suspect]
     Indication: PAIN
     Route: 062
  2. PAIN MEDICATION [Concomitant]
     Indication: PAIN
     Route: 065
  3. ANTI-INFLAMMATORY MEDICATION [Concomitant]
     Indication: PRODUCT USED FOR UNKNOWN INDICATION
     Route: 065
     Dates: start: 2004

REACTIONS (13)
  - Fall [Recovered/Resolved]
  - Injury [Unknown]
  - Rotator cuff syndrome [Unknown]
  - Cyst [Unknown]
  - Pain [Unknown]
  - Product quality issue [Not Recovered/Not Resolved]
  - Wrong technique in drug usage process [Not Recovered/Not Resolved]
  - Wrong technique in drug usage process [Unknown]
  - Muscle tightness [Unknown]
  - Wrong technique in drug usage process [Not Recovered/Not Resolved]
  - Application site erythema [Unknown]
  - Drug administered at inappropriate site [Not Recovered/Not Resolved]
  - Swelling [Unknown]
